FAERS Safety Report 9828764 (Version 2)
Quarter: 2014Q1

REPORT INFORMATION
  Report Type: Not Available
  Country: US (occurrence: US)
  Receive Date: 20140117
  Receipt Date: 20140117
  Transmission Date: 20141002
  Serious: Yes (Death, Hospitalization)
  Sender: FDA-Public Use
  Company Number: US-ONYX-2013-1824

PATIENT
  Age: 67 Year
  Sex: Male

DRUGS (7)
  1. KYPROLIS [Suspect]
     Indication: PLASMA CELL MYELOMA
     Route: 042
     Dates: start: 201310, end: 20131224
  2. METOPROLOL [Concomitant]
     Indication: BLOOD PRESSURE ABNORMAL
  3. OMEPRAZOLE [Concomitant]
     Indication: GASTRIC DISORDER
  4. VALTREX [Concomitant]
     Indication: ANTIVIRAL PROPHYLAXIS
  5. OXYCODONE [Concomitant]
     Indication: PAIN
  6. ALLOPURINOL [Concomitant]
     Indication: PRODUCT USED FOR UNKNOWN INDICATION
  7. LISINOPRIL [Concomitant]
     Indication: BLOOD PRESSURE ABNORMAL

REACTIONS (5)
  - Death [Fatal]
  - Pneumonia [Recovering/Resolving]
  - White blood cell count decreased [Unknown]
  - Platelet count decreased [Unknown]
  - Dysuria [Recovering/Resolving]
